FAERS Safety Report 15939805 (Version 3)
Quarter: 2019Q3

REPORT INFORMATION
  Report Type: Spontaneous
  Country: US (occurrence: US)
  Receive Date: 20190208
  Receipt Date: 20190731
  Transmission Date: 20191004
  Serious: Yes (Hospitalization, Disabling, Other)
  Sender: FDA-Public Use
  Company Number: US-ASTRAZENECA-2019SE11581

PATIENT
  Age: 764 Month
  Sex: Male
  Weight: 138.3 kg

DRUGS (21)
  1. NEXIUM [Suspect]
     Active Substance: ESOMEPRAZOLE MAGNESIUM
     Indication: GASTROOESOPHAGEAL REFLUX DISEASE
     Dosage: FOR MULTIPLE AND VARIOUS YEARS
     Route: 048
  2. NEXIUM [Suspect]
     Active Substance: ESOMEPRAZOLE MAGNESIUM
     Indication: GASTROOESOPHAGEAL REFLUX DISEASE
     Route: 048
  3. NEXIUM [Suspect]
     Active Substance: ESOMEPRAZOLE MAGNESIUM
     Indication: GASTROOESOPHAGEAL REFLUX DISEASE
     Route: 048
     Dates: start: 2009, end: 2013
  4. CLINDAMYCIN. [Concomitant]
     Active Substance: CLINDAMYCIN
  5. NEXIUM 24HR [Suspect]
     Active Substance: ESOMEPRAZOLE MAGNESIUM
     Indication: GASTROOESOPHAGEAL REFLUX DISEASE
     Dosage: FOR MULTIPLE AND VARIOUS YEARS
     Route: 048
  6. AMLODIPINE BESYLATE. [Concomitant]
     Active Substance: AMLODIPINE BESYLATE
  7. ATORVASTATIN [Concomitant]
     Active Substance: ATORVASTATIN
  8. NEXIUM 24HR [Suspect]
     Active Substance: ESOMEPRAZOLE MAGNESIUM
     Indication: GASTROOESOPHAGEAL REFLUX DISEASE
     Dosage: 20 MG
     Route: 048
     Dates: start: 2010
  9. AMOXICILLIN. [Concomitant]
     Active Substance: AMOXICILLIN
  10. LISINOPRIL. [Concomitant]
     Active Substance: LISINOPRIL
  11. CHLORHEXIDINE [Concomitant]
     Active Substance: CHLORHEXIDINE
  12. LATANOPROST. [Concomitant]
     Active Substance: LATANOPROST
  13. PEPCID [Concomitant]
     Active Substance: FAMOTIDINE
  14. LUMIGAN [Concomitant]
     Active Substance: BIMATOPROST
  15. LATANOPROST. [Concomitant]
     Active Substance: LATANOPROST
  16. DILTIAZEM. [Concomitant]
     Active Substance: DILTIAZEM
  17. TYLENOL [Concomitant]
     Active Substance: ACETAMINOPHEN
  18. SULAR [Concomitant]
     Active Substance: NISOLDIPINE
  19. DOXAZOSIN [Concomitant]
     Active Substance: DOXAZOSIN MESYLATE
  20. LOSARTAN. [Concomitant]
     Active Substance: LOSARTAN
  21. TUMS [Concomitant]
     Active Substance: CALCIUM CARBONATE

REACTIONS (5)
  - Renal injury [Unknown]
  - Renal failure [Unknown]
  - End stage renal disease [Unknown]
  - Rebound acid hypersecretion [Unknown]
  - Chronic kidney disease [Not Recovered/Not Resolved]

NARRATIVE: CASE EVENT DATE: 201605
